FAERS Safety Report 21072982 (Version 1)
Quarter: 2022Q3

REPORT INFORMATION
  Report Type: Spontaneous
  Country: US (occurrence: US)
  Receive Date: 20220712
  Receipt Date: 20220712
  Transmission Date: 20221026
  Serious: No
  Sender: FDA-Public Use
  Company Number: US-SA-SAC20220708001552

PATIENT
  Sex: Male

DRUGS (2)
  1. ALLEGRA [Suspect]
     Active Substance: FEXOFENADINE HYDROCHLORIDE
     Indication: Urticaria
     Dosage: UNK (4 ALLEGRA A DAY)
  2. TAGAMET [Concomitant]
     Active Substance: CIMETIDINE
     Indication: Gastrointestinal disorder prophylaxis
     Dosage: UNK

REACTIONS (1)
  - Incorrect dose administered [Unknown]
